FAERS Safety Report 13680756 (Version 1)
Quarter: 2017Q2

REPORT INFORMATION
  Report Type: Spontaneous
  Country: US (occurrence: US)
  Receive Date: 20170623
  Receipt Date: 20170623
  Transmission Date: 20170830
  Serious: No
  Sender: FDA-Public Use
  Company Number: US-ALVOGEN-2017-ALVOGEN-091954

PATIENT
  Age: 84 Year
  Sex: Female

DRUGS (6)
  1. DILTIAZEM. [Concomitant]
     Active Substance: DILTIAZEM
  2. ATORVASTATIN CALCIUM. [Concomitant]
     Active Substance: ATORVASTATIN CALCIUM
  3. LOSARTAN. [Concomitant]
     Active Substance: LOSARTAN
  4. APIXABAN [Concomitant]
     Active Substance: APIXABAN
  5. AMIODARONE [Concomitant]
     Active Substance: AMIODARONE
  6. RIVASTIGMINE. [Suspect]
     Active Substance: RIVASTIGMINE
     Indication: DEMENTIA
     Route: 062

REACTIONS (5)
  - Hypersomnia [Unknown]
  - Accidental overdose [Unknown]
  - Nausea [Unknown]
  - Swelling face [Recovering/Resolving]
  - Retching [Unknown]

NARRATIVE: CASE EVENT DATE: 20170407
